FAERS Safety Report 8336371-3 (Version None)
Quarter: 2012Q2

REPORT INFORMATION
  Report Type: 
  Country: None (occurrence: None)
  Receive Date: 20120504
  Receipt Date: 20120427
  Transmission Date: 20120825
  Serious: Yes (Hospitalization, Other)
  Sender: FDA-Public Use
  Company Number: PHHY2012ES037010

PATIENT
  Age: 70 Year
  Sex: Male

DRUGS (2)
  1. DASATINIB [Suspect]
     Dosage: 100 MG, DAILY
     Route: 048
  2. GLEEVEC [Suspect]
     Indication: CHRONIC MYELOID LEUKAEMIA
     Dosage: UNK UKN, UNK
     Route: 048

REACTIONS (3)
  - CARDIOVASCULAR DISORDER [None]
  - FLUID RETENTION [None]
  - PLEURAL EFFUSION [None]
